FAERS Safety Report 9859135 (Version 2)
Quarter: 2014Q2

REPORT INFORMATION
  Report Type: Spontaneous
  Country: US (occurrence: None)
  Receive Date: 20140129
  Receipt Date: 20140422
  Transmission Date: 20141212
  Serious: Yes (Life-Threatening, Hospitalization, Other)
  Sender: FDA-Public Use
  Company Number: 2014-US-000517

PATIENT
  Age: 60 Year
  Sex: Female

DRUGS (1)
  1. XYREM [Suspect]
     Indication: NARCOLEPSY
     Route: 048
     Dates: start: 201208, end: 2012

REACTIONS (7)
  - H1N1 influenza [None]
  - Medical induction of coma [None]
  - Weight decreased [None]
  - Asthenia [None]
  - Memory impairment [None]
  - Pneumonia [None]
  - Back injury [None]
